FAERS Safety Report 24964101 (Version 3)
Quarter: 2025Q2

REPORT INFORMATION
  Report Type: Spontaneous
  Country: JP (occurrence: JP)
  Receive Date: 20250213
  Receipt Date: 20250422
  Transmission Date: 20250716
  Serious: Yes (Other)
  Sender: TERSERA THERAPEUTICS
  Company Number: JP-ASTRAZENECA-250012396_010240_P_1

PATIENT

DRUGS (3)
  1. GOSERELIN [Suspect]
     Active Substance: GOSERELIN
     Indication: Breast cancer female
     Route: 058
     Dates: end: 202501
  2. ZOLADEX [Suspect]
     Active Substance: GOSERELIN ACETATE
     Indication: Breast cancer female
     Route: 065
  3. NOLVADEX [Suspect]
     Active Substance: TAMOXIFEN CITRATE
     Indication: Breast cancer female
     Route: 048
     Dates: start: 202301, end: 202501

REACTIONS (2)
  - Leukaemia [Not Recovered/Not Resolved]
  - Myelosuppression [Unknown]

NARRATIVE: CASE EVENT DATE: 20240915
